FAERS Safety Report 7294957-1 (Version None)
Quarter: 2011Q1

REPORT INFORMATION
  Report Type: 
  Country: None (occurrence: None)
  Receive Date: 20110216
  Receipt Date: 20110211
  Transmission Date: 20110831
  Serious: Yes (Other)
  Sender: FDA-Public Use
  Company Number: US-BAYER-2011-013986

PATIENT
  Sex: Female

DRUGS (1)
  1. YASMIN [Suspect]
     Indication: PRODUCT USED FOR UNKNOWN INDICATION
     Dosage: UNK
     Route: 048
     Dates: start: 20060801, end: 20080701

REACTIONS (5)
  - GALLBLADDER DISORDER [None]
  - EMOTIONAL DISTRESS [None]
  - ABDOMINAL PAIN [None]
  - INJURY [None]
  - ANXIETY [None]
